FAERS Safety Report 6165094-4 (Version None)
Quarter: 2009Q2

REPORT INFORMATION
  Report Type: 
  Country: None (occurrence: None)
  Receive Date: 20090423
  Receipt Date: 20090413
  Transmission Date: 20091009
  Serious: Yes (Other)
  Sender: FDA-Public Use
  Company Number: US-ELI_LILLY_AND_COMPANY-US200902006972

PATIENT
  Sex: Female

DRUGS (3)
  1. CYMBALTA [Suspect]
     Indication: DEPRESSION
     Dosage: 30 MG, UNK
     Dates: start: 20081201, end: 20090101
  2. GEODON [Concomitant]
     Dosage: 20 MG, UNK
  3. MARIJUANA [Concomitant]

REACTIONS (1)
  - HEPATITIS C [None]
